FAERS Safety Report 13871692 (Version 1)
Quarter: 2017Q3

REPORT INFORMATION
  Report Type: Spontaneous
  Country: BR (occurrence: BR)
  Receive Date: 20170816
  Receipt Date: 20170816
  Transmission Date: 20171127
  Serious: Yes (Other)
  Sender: FDA-Public Use
  Company Number: BR-PFIZER INC-2017237343

PATIENT
  Age: 50 Year
  Sex: Female

DRUGS (3)
  1. SOMALIUM [Concomitant]
     Active Substance: BROMAZEPAM
     Dosage: 0.25 DF, UNK
  2. PREMARIN [Suspect]
     Active Substance: ESTROGENS, CONJUGATED
     Indication: HORMONE LEVEL ABNORMAL
     Dosage: 1 DRAGEE PER DAY, IN THE MORNING
     Dates: start: 1983, end: 1993
  3. PREMARIN [Suspect]
     Active Substance: ESTROGENS, CONJUGATED
     Dosage: 1 DRAGEE PER DAY, IN THE MORNING
     Dates: start: 1993, end: 2015

REACTIONS (4)
  - Urinary retention [Recovered/Resolved]
  - Endometrial thickening [Recovered/Resolved]
  - Pre-existing condition improved [Not Recovered/Not Resolved]
  - Therapeutic response unexpected [Not Recovered/Not Resolved]

NARRATIVE: CASE EVENT DATE: 1983
